FAERS Safety Report 7768945-2 (Version None)
Quarter: 2011Q3

REPORT INFORMATION
  Report Type: 
  Country: None (occurrence: None)
  Receive Date: 20110922
  Receipt Date: 20110119
  Transmission Date: 20111222
  Serious: No
  Sender: FDA-Public Use
  Company Number: US-ASTRAZENECA-2011SE03503

PATIENT
  Sex: Female
  Weight: 108 kg

DRUGS (11)
  1. SEROQUEL [Suspect]
     Indication: BIPOLAR DISORDER
     Route: 048
  2. RENVELA [Concomitant]
     Indication: CHELATION THERAPY
  3. KLONOPIN [Concomitant]
  4. ASPIRIN [Concomitant]
  5. PHOSLO [Concomitant]
     Indication: CHELATION THERAPY
  6. DEPAKOTE [Concomitant]
  7. CELEXA [Concomitant]
  8. LITHIUM CARBONATE [Concomitant]
  9. RENAL VITAMIN [Concomitant]
  10. ZYPREXA [Concomitant]
  11. SYNTHROID [Concomitant]
     Indication: THYROID DISORDER

REACTIONS (2)
  - WEIGHT INCREASED [None]
  - DIALYSIS [None]
